FAERS Safety Report 26185066 (Version 1)
Quarter: 2025Q4

REPORT INFORMATION
  Report Type: Spontaneous
  Country: JP (occurrence: JP)
  Receive Date: 20251222
  Receipt Date: 20251222
  Transmission Date: 20260117
  Serious: Yes (Other)
  Sender: BRISTOL-MYERS SQUIBB COMPANY
  Company Number: JP-BRISTOL-MYERS SQUIBB COMPANY-2025-170318

PATIENT

DRUGS (1)
  1. SPRYCEL [Suspect]
     Active Substance: DASATINIB
     Indication: Chronic myeloid leukaemia

REACTIONS (5)
  - Pleural effusion [Not Recovered/Not Resolved]
  - Pleurisy [Not Recovered/Not Resolved]
  - Pneumonia bacterial [Unknown]
  - Infectious pleural effusion [Unknown]
  - Restrictive pulmonary disease [Unknown]

NARRATIVE: CASE EVENT DATE: 20230101
